FAERS Safety Report 10156446 (Version 2)
Quarter: 2014Q2

REPORT INFORMATION
  Report Type: Spontaneous
  Country: FR (occurrence: FR)
  Receive Date: 20140507
  Receipt Date: 20140507
  Transmission Date: 20141212
  Serious: Yes (Other)
  Sender: FDA-Public Use
  Company Number: FR-ASTRAZENECA-2014SE27180

PATIENT
  Sex: Female

DRUGS (2)
  1. XEROQUEL [Suspect]
     Indication: BIPOLAR I DISORDER
     Route: 048
     Dates: start: 201312, end: 201401
  2. PROZAC [Concomitant]

REACTIONS (2)
  - Bipolar disorder [Recovered/Resolved]
  - Somnolence [Recovered/Resolved]
